FAERS Safety Report 4999456-5 (Version None)
Quarter: 2006Q2

REPORT INFORMATION
  Report Type: 
  Country: None (occurrence: None)
  Receive Date: 20060510
  Receipt Date: 20060510
  Transmission Date: 20061013
  Serious: Yes (Life-Threatening)
  Sender: FDA-Public Use
  Company Number: None

PATIENT
  Age: 73 Year
  Sex: Male
  Weight: 89 kg

DRUGS (7)
  1. PHENYTOIN [Suspect]
     Indication: CONVULSION PROPHYLAXIS
     Dosage: 1400MG  ? IV  X 1
     Route: 042
     Dates: start: 20060324
  2. ASPIRIN [Concomitant]
  3. ATENOLOL [Concomitant]
  4. HYDROCHLOROTHIAZIDE [Concomitant]
  5. ATORVASTATIN CALCIUM [Concomitant]
  6. NEXIUM [Concomitant]
  7. NIFEDIPINE [Concomitant]

REACTIONS (4)
  - BLOOD PRESSURE DECREASED [None]
  - RESPIRATION ABNORMAL [None]
  - SNORING [None]
  - UNRESPONSIVE TO VERBAL STIMULI [None]
